FAERS Safety Report 9426427 (Version 1)
Quarter: 2013Q3

REPORT INFORMATION
  Report Type: Spontaneous
  Country: US (occurrence: None)
  Receive Date: 20130729
  Receipt Date: 20130729
  Transmission Date: 20140515
  Serious: Yes (Hospitalization)
  Sender: FDA-Public Use
  Company Number: None

PATIENT
  Age: 66 Year
  Sex: Male
  Weight: 74.1 kg

DRUGS (1)
  1. BOTULINUM TOXIN TYPE A [Suspect]
     Dates: start: 20120828, end: 20120828

REACTIONS (1)
  - Dysphagia [None]
